FAERS Safety Report 6231576-X (Version None)
Quarter: 2009Q2

REPORT INFORMATION
  Report Type: 
  Country: None (occurrence: None)
  Receive Date: 20090616
  Receipt Date: 20090605
  Transmission Date: 20091009
  Serious: Yes (Other)
  Sender: FDA-Public Use
  Company Number: US-AMGEN-QUU350465

PATIENT
  Sex: Female

DRUGS (2)
  1. ENBREL [Suspect]
     Indication: RHEUMATOID ARTHRITIS
     Route: 058
  2. SALSALATE [Concomitant]

REACTIONS (8)
  - ASTHENIA [None]
  - BURSITIS [None]
  - CATARACT [None]
  - FATIGUE [None]
  - RHEUMATOID ARTHRITIS [None]
  - TINNITUS [None]
  - TRABECULECTOMY [None]
  - VISION BLURRED [None]
